FAERS Safety Report 7320951-8 (Version None)
Quarter: 2011Q1

REPORT INFORMATION
  Report Type: 
  Country: None (occurrence: None)
  Receive Date: 20110228
  Receipt Date: 20110216
  Transmission Date: 20110831
  Serious: Yes (Hospitalization, Other)
  Sender: FDA-Public Use
  Company Number: JP-ROCHE-761479

PATIENT
  Age: 24 Year
  Sex: Male
  Weight: 70 kg

DRUGS (8)
  1. HORMONES NOS [Suspect]
     Route: 065
     Dates: start: 20110211
  2. CELLCEPT [Suspect]
     Route: 048
     Dates: start: 20110116, end: 20110124
  3. CELLCEPT [Suspect]
     Route: 048
     Dates: start: 20110115, end: 20110116
  4. HORMONES NOS [Suspect]
     Dosage: DRUG: ADRENAL HORMONE PREPARATIONS
     Route: 065
     Dates: end: 20110124
  5. CELLCEPT [Suspect]
     Route: 048
     Dates: start: 20110217
  6. PROGRAF [Suspect]
     Route: 065
     Dates: start: 20110211
  7. CELLCEPT [Suspect]
     Route: 048
     Dates: start: 20110211, end: 20110216
  8. PROGRAF [Suspect]
     Dosage: DOSE FORM: UNCERTAINITY
     Route: 065
     Dates: end: 20110124

REACTIONS (7)
  - ASPARTATE AMINOTRANSFERASE INCREASED [None]
  - ALTERED STATE OF CONSCIOUSNESS [None]
  - ILEUS [None]
  - WHITE BLOOD CELL COUNT DECREASED [None]
  - PLATELET COUNT DECREASED [None]
  - DIARRHOEA [None]
  - HICCUPS [None]
